FAERS Safety Report 5391307-2 (Version None)
Quarter: 2007Q3

REPORT INFORMATION
  Report Type: 
  Country: None (occurrence: None)
  Receive Date: 20070719
  Receipt Date: 20070717
  Transmission Date: 20080115
  Serious: Yes (Other)
  Sender: FDA-Public Use
  Company Number: A0664657A

PATIENT
  Age: 84 Year
  Sex: Male
  Weight: 77 kg

DRUGS (4)
  1. SERETIDE [Suspect]
     Indication: ASTHMA
     Route: 055
     Dates: start: 20050701
  2. ALLOPURINOL [Concomitant]
     Dates: start: 20050101
  3. PENTOXIFYLLINE [Concomitant]
     Dates: start: 20050101
  4. UNSPECIFIED MEDICATION [Concomitant]
     Dates: start: 20050101

REACTIONS (2)
  - ANAEMIA [None]
  - DRUG INEFFECTIVE [None]
